FAERS Safety Report 9419613 (Version 1)
Quarter: 2013Q3

REPORT INFORMATION
  Report Type: Spontaneous
  Country: US (occurrence: None)
  Receive Date: 20130724
  Receipt Date: 20130724
  Transmission Date: 20140515
  Serious: Yes (Other)
  Sender: FDA-Public Use
  Company Number: None

PATIENT
  Age: 85 Year
  Sex: Female
  Weight: 63.5 kg

DRUGS (2)
  1. MYRBETRIQ [Suspect]
     Indication: HYPERTONIC BLADDER
     Dosage: JUNE 6 + 7TH
  2. MYRBETRIQ [Suspect]
     Indication: HYPERTONIC BLADDER
     Dosage: JUNE 13 TO 20

REACTIONS (2)
  - Headache [None]
  - Blood pressure systolic increased [None]
